FAERS Safety Report 7657467-5 (Version None)
Quarter: 2011Q3

REPORT INFORMATION
  Report Type: 
  Country: None (occurrence: None)
  Receive Date: 20110804
  Receipt Date: 20110729
  Transmission Date: 20111222
  Serious: Yes (Other)
  Sender: FDA-Public Use
  Company Number: CHPA2011US10213

PATIENT
  Age: 49 Year
  Sex: Male

DRUGS (1)
  1. PHENYLEPHRINE HCL [Suspect]
     Indication: NASAL SEPTUM DEVIATION
     Dosage: 4 TO 7 SPRAYS, EVERYDAY
     Route: 045
     Dates: start: 19900101

REACTIONS (2)
  - OFF LABEL USE [None]
  - DRUG DEPENDENCE [None]
